FAERS Safety Report 6289111-6 (Version None)
Quarter: 2009Q3

REPORT INFORMATION
  Report Type: 
  Country: None (occurrence: None)
  Receive Date: 20090729
  Receipt Date: 20090602
  Transmission Date: 20100115
  Serious: No
  Sender: FDA-Public Use
  Company Number: JP-ASTRAZENECA-2009SE05538

PATIENT
  Age: 36 Year
  Sex: Female

DRUGS (7)
  1. SEROQUEL [Suspect]
     Route: 048
     Dates: start: 20090323, end: 20090324
  2. SEROQUEL [Suspect]
     Route: 048
     Dates: start: 20090325, end: 20090325
  3. SEROQUEL [Suspect]
     Route: 048
     Dates: start: 20090326, end: 20090327
  4. SEROQUEL [Suspect]
     Route: 048
     Dates: start: 20090328, end: 20090329
  5. SEROQUEL [Suspect]
     Route: 048
     Dates: start: 20090330, end: 20090401
  6. SEROQUEL [Suspect]
     Route: 048
     Dates: start: 20090402, end: 20090424
  7. SEROQUEL [Suspect]
     Route: 048
     Dates: start: 20090425, end: 20090508

REACTIONS (1)
  - WHITE BLOOD CELL COUNT DECREASED [None]
